FAERS Safety Report 8429696-4 (Version None)
Quarter: 2012Q2

REPORT INFORMATION
  Report Type: 
  Country: None (occurrence: None)
  Receive Date: 20120604
  Receipt Date: 20120522
  Transmission Date: 20120825
  Serious: Yes (Other)
  Sender: FDA-Public Use
  Company Number: DKLU1081340

PATIENT
  Age: 7 Year
  Sex: Male

DRUGS (1)
  1. SABRIL [Suspect]
     Indication: ENZYME ABNORMALITY
     Dosage: 15 MG/KG MILLIGRAM(S)/KILOGRAM, 1 IN 1 D, 30 MG/KG MILLIGRAM(S)/KILOGRAM, 1 IN 1 D

REACTIONS (1)
  - RETINAL DYSTROPHY [None]
